FAERS Safety Report 23625788 (Version 2)
Quarter: 2024Q2

REPORT INFORMATION
  Report Type: Spontaneous
  Country: US (occurrence: US)
  Receive Date: 20240313
  Receipt Date: 20240405
  Transmission Date: 20240716
  Serious: Yes (Other)
  Sender: FDA-Public Use
  Company Number: US-BRISTOL-MYERS SQUIBB COMPANY-2023-152596

PATIENT
  Age: 64 Year
  Sex: Male

DRUGS (2)
  1. LENALIDOMIDE [Suspect]
     Active Substance: LENALIDOMIDE
     Indication: Plasma cell myeloma
     Dosage: TAKE 1 CAPSULE BYMOUTH EVERY DAY FOR 21 DAYS ON THEN 7 DAYS OFF REPEAT CYCLE.
     Route: 048
     Dates: start: 20221117
  2. LENALIDOMIDE [Suspect]
     Active Substance: LENALIDOMIDE
     Route: 048
     Dates: start: 20230107

REACTIONS (3)
  - Product distribution issue [Unknown]
  - Therapy interrupted [Unknown]
  - Inability to afford medication [Recovered/Resolved]
